FAERS Safety Report 12911943 (Version 3)
Quarter: 2017Q1

REPORT INFORMATION
  Report Type: Spontaneous
  Country: CA (occurrence: CA)
  Receive Date: 20161104
  Receipt Date: 20170324
  Transmission Date: 20170428
  Serious: Yes (Other)
  Sender: FDA-Public Use
  Company Number: CA-GLAXOSMITHKLINE-CA2016GSK159053

PATIENT
  Sex: Female

DRUGS (1)
  1. ADVAIR HFA [Suspect]
     Active Substance: FLUTICASONE PROPIONATE\SALMETEROL XINAFOATE
     Indication: PRODUCT USED FOR UNKNOWN INDICATION
     Dosage: UNK

REACTIONS (6)
  - Post-traumatic stress disorder [Unknown]
  - Urinary tract infection [Unknown]
  - Major depression [Unknown]
  - Borderline personality disorder [Unknown]
  - Schizophrenia [Unknown]
  - Adverse event [Unknown]

NARRATIVE: CASE EVENT DATE: 2012
